FAERS Safety Report 18234366 (Version 1)
Quarter: 2020Q3

REPORT INFORMATION
  Report Type: Spontaneous
  Country: US (occurrence: US)
  Receive Date: 20200904
  Receipt Date: 20200904
  Transmission Date: 20201103
  Serious: No
  Sender: FDA-Public Use
  Company Number: US-ASCEND THERAPEUTICS US, LLC-2089411

PATIENT
  Age: 61 Year
  Sex: Female

DRUGS (3)
  1. ESTROGEL [Suspect]
     Active Substance: ESTRADIOL
     Indication: MENOPAUSE
     Route: 062
     Dates: start: 202001
  2. ESTROGEL [Suspect]
     Active Substance: ESTRADIOL
  3. PREDNISONE. [Suspect]
     Active Substance: PREDNISONE
     Route: 048
     Dates: start: 202001

REACTIONS (4)
  - Product use issue [None]
  - Product packaging issue [None]
  - Product dose omission issue [Recovered/Resolved]
  - Product dispensing issue [None]

NARRATIVE: CASE EVENT DATE: 2020
